FAERS Safety Report 12795697 (Version 2)
Quarter: 2016Q4

REPORT INFORMATION
  Report Type: Spontaneous
  Country: PT (occurrence: PT)
  Receive Date: 20160929
  Receipt Date: 20161010
  Transmission Date: 20170207
  Serious: Yes (Hospitalization, Other)
  Sender: FDA-Public Use
  Company Number: PT-SA-2016SA175391

PATIENT
  Age: 64 Year
  Sex: Female

DRUGS (20)
  1. ISONIAZID. [Suspect]
     Active Substance: ISONIAZID
     Indication: IMMUNE TOLERANCE INDUCTION
     Route: 065
     Dates: start: 201509
  2. ISONIAZID. [Suspect]
     Active Substance: ISONIAZID
     Indication: TUBERCULOSIS
     Route: 065
     Dates: start: 2015
  3. ETHAMBUTOL [Suspect]
     Active Substance: ETHAMBUTOL HYDROCHLORIDE
     Indication: TUBERCULOSIS
     Route: 065
     Dates: start: 201505, end: 20150716
  4. ISONIAZID. [Suspect]
     Active Substance: ISONIAZID
     Indication: TUBERCULOSIS
     Route: 065
     Dates: start: 201505, end: 20150716
  5. ISONIAZID. [Suspect]
     Active Substance: ISONIAZID
     Indication: IMMUNE TOLERANCE INDUCTION
     Route: 065
     Dates: start: 2015
  6. RIFAMPICIN [Suspect]
     Active Substance: RIFAMPIN
     Indication: TUBERCULOSIS
     Route: 065
     Dates: start: 2015
  7. ETHAMBUTOL [Suspect]
     Active Substance: ETHAMBUTOL HYDROCHLORIDE
     Indication: TUBERCULOSIS
     Route: 065
     Dates: start: 201509
  8. ALLOPURINOL. [Suspect]
     Active Substance: ALLOPURINOL
     Indication: HYPERURICAEMIA
     Route: 065
     Dates: start: 201506, end: 201507
  9. RIFAMPICIN [Suspect]
     Active Substance: RIFAMPIN
     Indication: TUBERCULOSIS
     Route: 065
     Dates: start: 201505, end: 20150716
  10. RIFAMPICIN [Suspect]
     Active Substance: RIFAMPIN
     Indication: IMMUNE TOLERANCE INDUCTION
     Route: 065
     Dates: start: 201505, end: 20150716
  11. ISONIAZID. [Suspect]
     Active Substance: ISONIAZID
     Indication: IMMUNE TOLERANCE INDUCTION
     Route: 065
     Dates: start: 201505, end: 20150716
  12. RIFAMPICIN [Suspect]
     Active Substance: RIFAMPIN
     Indication: IMMUNE TOLERANCE INDUCTION
     Route: 065
     Dates: start: 20150903, end: 20150911
  13. ETHAMBUTOL [Suspect]
     Active Substance: ETHAMBUTOL HYDROCHLORIDE
     Indication: IMMUNE TOLERANCE INDUCTION
     Route: 065
     Dates: start: 201505, end: 20150716
  14. ETHAMBUTOL [Suspect]
     Active Substance: ETHAMBUTOL HYDROCHLORIDE
     Indication: IMMUNE TOLERANCE INDUCTION
     Route: 065
     Dates: start: 2015
  15. ETHAMBUTOL [Suspect]
     Active Substance: ETHAMBUTOL HYDROCHLORIDE
     Indication: IMMUNE TOLERANCE INDUCTION
     Route: 065
     Dates: start: 201509
  16. ISONIAZID. [Suspect]
     Active Substance: ISONIAZID
     Indication: TUBERCULOSIS
     Route: 065
     Dates: start: 201509
  17. RIFAMPICIN [Suspect]
     Active Substance: RIFAMPIN
     Indication: TUBERCULOSIS
     Route: 065
     Dates: start: 20150903, end: 20150911
  18. PYRAZINAMIDE. [Suspect]
     Active Substance: PYRAZINAMIDE
     Indication: TUBERCULOSIS
     Route: 065
     Dates: start: 201505, end: 20150716
  19. RIFAMPICIN [Suspect]
     Active Substance: RIFAMPIN
     Indication: IMMUNE TOLERANCE INDUCTION
     Route: 065
     Dates: start: 2015
  20. ETHAMBUTOL [Suspect]
     Active Substance: ETHAMBUTOL HYDROCHLORIDE
     Indication: TUBERCULOSIS
     Route: 065
     Dates: start: 2015

REACTIONS (8)
  - Drug reaction with eosinophilia and systemic symptoms [Recovered/Resolved]
  - Pruritus [Recovered/Resolved]
  - Rash generalised [Recovered/Resolved]
  - Rash maculo-papular [Recovered/Resolved]
  - Eosinophilia [Recovered/Resolved]
  - Erythema [Recovered/Resolved]
  - Malaise [Recovered/Resolved]
  - Pyrexia [Recovered/Resolved]

NARRATIVE: CASE EVENT DATE: 201507
